FAERS Safety Report 4457889-X (Version None)
Quarter: 2004Q3

REPORT INFORMATION
  Report Type: 
  Country: None (occurrence: None)
  Receive Date: 20040924
  Receipt Date: 20040913
  Transmission Date: 20050211
  Serious: Yes (Life-Threatening, Hospitalization)
  Sender: FDA-Public Use
  Company Number: DE-JNJFOC-20040903781

PATIENT
  Sex: Male
  Weight: 78 kg

DRUGS (3)
  1. RISPERDAL CONSTA [Suspect]
     Indication: SCHIZOID PERSONALITY DISORDER
     Dosage: DURATION OF THERAPY: MONTHS
     Route: 030
  2. EUNERPAN [Interacting]
     Indication: DRUG USE FOR UNKNOWN INDICATION
     Dosage: DURATION OF THERAPY: MONTHS
     Route: 049
  3. AKINETON [Concomitant]
     Dosage: TAKEN AS NEEDED
     Route: 049

REACTIONS (5)
  - COMA [None]
  - DRUG INTERACTION [None]
  - ELECTROCARDIOGRAM QT PROLONGED [None]
  - INAPPROPRIATE ANTIDIURETIC HORMONE SECRETION [None]
  - POLYDIPSIA [None]
